FAERS Safety Report 12305806 (Version 1)
Quarter: 2016Q2

REPORT INFORMATION
  Report Type: Spontaneous
  Country: US (occurrence: US)
  Receive Date: 20160426
  Receipt Date: 20160426
  Transmission Date: 20160815
  Serious: Yes (Other)
  Sender: FDA-Public Use
  Company Number: US-ASTELLAS-2016US015421

PATIENT
  Age: 68 Year
  Sex: Male

DRUGS (2)
  1. MYFORTIC [Concomitant]
     Active Substance: MYCOPHENOLATE SODIUM
     Indication: PRODUCT USED FOR UNKNOWN INDICATION
     Route: 065
  2. PROGRAF [Suspect]
     Active Substance: TACROLIMUS\TACROLIMUS ANHYDROUS
     Indication: PROPHYLAXIS AGAINST TRANSPLANT REJECTION
     Dosage: 1.5 MG (0.5 MG CAPSULE 2 IN THE MORNING AND 1 AT NIGHT), TWICE DAILY
     Route: 048

REACTIONS (5)
  - Insomnia [Unknown]
  - Hypoaesthesia [Unknown]
  - Kyphosis [Unknown]
  - Sexual dysfunction [Unknown]
  - Paraesthesia [Unknown]

NARRATIVE: CASE EVENT DATE: 201512
